FAERS Safety Report 11989821 (Version 1)
Quarter: 2016Q1

REPORT INFORMATION
  Report Type: Spontaneous
  Country: US (occurrence: US)
  Receive Date: 20160202
  Receipt Date: 20160202
  Transmission Date: 20160526
  Serious: No
  Sender: FDA-Public Use
  Company Number: US-ROCHE-1120272

PATIENT
  Sex: Female
  Weight: 43.6 kg

DRUGS (2)
  1. NUTROPIN AQ PEN [Suspect]
     Active Substance: SOMATROPIN
     Route: 058
  2. NUTROPIN AQ PEN [Suspect]
     Active Substance: SOMATROPIN
     Indication: BODY HEIGHT BELOW NORMAL
     Dosage: 2.2 MG/L
     Route: 058

REACTIONS (1)
  - Malaise [Unknown]
